FAERS Safety Report 8393846-9 (Version None)
Quarter: 2012Q2

REPORT INFORMATION
  Report Type: 
  Country: None (occurrence: None)
  Receive Date: 20120530
  Receipt Date: 20120525
  Transmission Date: 20120825
  Serious: No
  Sender: FDA-Public Use
  Company Number: US-PFIZER INC-2012127280

PATIENT
  Sex: Female

DRUGS (1)
  1. NORVASC [Suspect]
     Indication: HYPERTENSION
     Dosage: UNK

REACTIONS (4)
  - ORAL DISORDER [None]
  - GINGIVAL DISORDER [None]
  - TOOTH DISORDER [None]
  - PROCEDURAL PAIN [None]
